FAERS Safety Report 5498646-5 (Version None)
Quarter: 2007Q4

REPORT INFORMATION
  Report Type: 
  Country: None (occurrence: None)
  Receive Date: 20071024
  Receipt Date: 20071012
  Transmission Date: 20080405
  Serious: Yes (Hospitalization)
  Sender: FDA-Public Use
  Company Number: 2007AL004352

PATIENT
  Age: 85 Year
  Sex: Female

DRUGS (7)
  1. DICLOFENAC SODIUM [Suspect]
     Indication: SPINAL OSTEOARTHRITIS
     Dosage: 50 MG; TID; PO
     Route: 048
     Dates: start: 20070311, end: 20070316
  2. ADCAL-D3 [Concomitant]
  3. FERROUS SULFATE TAB [Concomitant]
  4. PREDNISOLONE [Concomitant]
  5. CO-AMILOFRUSE [Concomitant]
  6. ALBUTEROL [Concomitant]
  7. BECLOMETHASONE DIPROPIONATE [Concomitant]

REACTIONS (4)
  - BLOOD ELECTROLYTES INCREASED [None]
  - BLOOD UREA INCREASED [None]
  - LOWER RESPIRATORY TRACT INFECTION [None]
  - NEPHROPATHY TOXIC [None]
